FAERS Safety Report 8591122 (Version 5)
Quarter: 2013Q1

REPORT INFORMATION
  Report Type: Report from Study
  Country: CA (occurrence: CA)
  Receive Date: 20120601
  Receipt Date: 20130114
  Transmission Date: 20140127
  Serious: Yes (Other)
  Sender: FDA-Public Use
  Company Number: CA-JNJFOC-20111210533

PATIENT
  Age: 29 Year
  Sex: Female
  Weight: 54.66 kg

DRUGS (3)
  1. PHENYLEPHRINE HYDROCHLORIDE [Suspect]
     Indication: INFLUENZA LIKE ILLNESS
     Dosage: 45 MG/ CAPSULE
     Route: 048
     Dates: start: 20111215, end: 20111215
  2. PHENYLEPHRINE HYDROCHLORIDE [Suspect]
     Indication: NASOPHARYNGITIS
     Dosage: 45 MG/ CAPSULE
     Route: 048
     Dates: start: 20111215, end: 20111215
  3. ALESSE [Concomitant]
     Indication: CONTRACEPTION
     Route: 048
     Dates: start: 201105, end: 20111217

REACTIONS (3)
  - Placental disorder [Unknown]
  - Small for dates baby [Unknown]
  - Exposure during pregnancy [Unknown]
